FAERS Safety Report 15404359 (Version 1)
Quarter: 2018Q3

REPORT INFORMATION
  Report Type: Spontaneous
  Country: IT (occurrence: IT)
  Receive Date: 20180919
  Receipt Date: 20180919
  Transmission Date: 20181010
  Serious: Yes (Hospitalization)
  Sender: FDA-Public Use
  Company Number: IT-ALLERGAN-1845622US

PATIENT
  Age: 75 Year
  Sex: Male

DRUGS (1)
  1. FOSFOMYCIN TROMETHAMINE ? BP [Suspect]
     Active Substance: FOSFOMYCIN TROMETHAMINE
     Indication: DYSURIA
     Dosage: 3 G, SINGLE
     Route: 048
     Dates: start: 20180801, end: 20180801

REACTIONS (4)
  - Erythema [Recovering/Resolving]
  - Skin reaction [Recovering/Resolving]
  - Pain [Recovering/Resolving]
  - Blister [Recovering/Resolving]

NARRATIVE: CASE EVENT DATE: 20180802
